FAERS Safety Report 8085188-6 (Version None)
Quarter: 2012Q1

REPORT INFORMATION
  Report Type: 
  Country: None (occurrence: None)
  Receive Date: 20120128
  Receipt Date: 20110307
  Transmission Date: 20120608
  Serious: No
  Sender: FDA-Public Use
  Company Number: US-ABBOTT-11P-163-0711629-00

PATIENT
  Age: 25 Year
  Sex: Female

DRUGS (7)
  1. HUMIRA [Suspect]
     Dosage: RESTARTED AFTER 10 DAYS AFTER STREP THROAT INFECTION
     Route: 058
     Dates: start: 20101201, end: 20110218
  2. ZYRTEC [Concomitant]
     Indication: HYPERSENSITIVITY
  3. SYMBICORT [Concomitant]
     Indication: ASTHMA
  4. HUMIRA [Suspect]
     Indication: PSORIASIS
     Route: 058
     Dates: start: 20100901, end: 20100901
  5. HUMIRA [Suspect]
     Route: 058
     Dates: start: 20100901, end: 20101123
  6. ZYRTEC [Concomitant]
     Indication: PRURITUS
  7. ALBUTEROL [Concomitant]
     Indication: ASTHMA

REACTIONS (3)
  - GUTTATE PSORIASIS [None]
  - PSORIASIS [None]
  - PHARYNGITIS STREPTOCOCCAL [None]
